FAERS Safety Report 4320398-2 (Version None)
Quarter: 2004Q1

REPORT INFORMATION
  Report Type: 
  Country: None (occurrence: None)
  Receive Date: 20040317
  Receipt Date: 20040305
  Transmission Date: 20041129
  Serious: No
  Sender: FDA-Public Use
  Company Number: 2004198351IE

PATIENT
  Sex: Female

DRUGS (2)
  1. BEXTRA [Suspect]
     Indication: SCIATICA
     Dosage: 1 DF, QD, ORAL
     Route: 048
     Dates: start: 20040201
  2. ZYDOL (TRAMADOL HYDROCHLORIDE) [Concomitant]

REACTIONS (1)
  - RASH PRURITIC [None]
